APPROVED DRUG PRODUCT: ENTRESTO
Active Ingredient: SACUBITRIL; VALSARTAN
Strength: 49MG;51MG
Dosage Form/Route: TABLET;ORAL
Application: N207620 | Product #002 | TE Code: AB
Applicant: NOVARTIS PHARMACEUTICALS CORP
Approved: Jul 7, 2015 | RLD: Yes | RS: No | Type: RX

PATENTS:
Patent 11135192 | Expires: Aug 22, 2033
Patent 9517226 | Expires: Aug 22, 2033
Patent 9937143 | Expires: Aug 22, 2033
Patent 9388134 | Expires: Nov 8, 2026
Patent 11058667 | Expires: May 9, 2036
Patent 8877938 | Expires: May 27, 2027
Patent 8877938*PED | Expires: Nov 27, 2027
Patent 9388134*PED | Expires: May 8, 2027